FAERS Safety Report 5176412-8 (Version None)
Quarter: 2006Q4

REPORT INFORMATION
  Report Type: 
  Country: None (occurrence: None)
  Receive Date: 20061207
  Receipt Date: 20061129
  Transmission Date: 20070319
  Serious: Yes (Life-Threatening)
  Sender: FDA-Public Use
  Company Number: 2006BH014834

PATIENT
  Age: 66 Year
  Sex: Female

DRUGS (2)
  1. METHYLPREDNISOLONE [Suspect]
     Indication: ENDOCRINE OPHTHALMOPATHY
     Dosage: 1 GM; EVERY DAY; IV
     Route: 042
  2. GLUCOSE             (DEXTROSE) SOLUTION FOR INTRAVENOUS INFUSION 5% [Concomitant]

REACTIONS (16)
  - ABDOMINAL PAIN [None]
  - ACUTE MYOCARDIAL INFARCTION [None]
  - AORTIC VALVE SCLEROSIS [None]
  - BACK PAIN [None]
  - BLOOD PRESSURE INCREASED [None]
  - CONDITION AGGRAVATED [None]
  - CORONARY ARTERY OCCLUSION [None]
  - DILATATION ATRIAL [None]
  - DISCOMFORT [None]
  - ENDOCRINE OPHTHALMOPATHY [None]
  - MITRAL VALVE INCOMPETENCE [None]
  - MITRAL VALVE SCLEROSIS [None]
  - MYOCARDIAL INFARCTION [None]
  - PAIN IN EXTREMITY [None]
  - TRICUSPID VALVE INCOMPETENCE [None]
  - VENTRICULAR DYSKINESIA [None]
